FAERS Safety Report 9940965 (Version 3)
Quarter: 2014Q1

REPORT INFORMATION
  Report Type: Spontaneous
  Country: JP (occurrence: JP)
  Receive Date: 20140303
  Receipt Date: 20140320
  Transmission Date: 20141002
  Serious: Yes (Death)
  Sender: FDA-Public Use
  Company Number: JP-B.I. PHARMACEUTICALS,INC./RIDGEFIELD-2014-BI-09349NB

PATIENT
  Age: 80 Year
  Sex: 0

DRUGS (4)
  1. TRAZENTA [Suspect]
     Indication: TYPE 2 DIABETES MELLITUS
     Dosage: 5 MG
     Route: 048
  2. AMINOLEBAN / AMINO ACID PREPARATIONS FOR HEPATIC INSUFFICIENCY [Concomitant]
     Route: 065
  3. NESP / DARBEPOETIN ALFA(GENETICAL RECOMBINATION) [Concomitant]
     Route: 065
  4. INSULIN / INSULIN [Concomitant]
     Route: 065

REACTIONS (1)
  - Marasmus [Fatal]
